FAERS Safety Report 6564924-1 (Version None)
Quarter: 2010Q1

REPORT INFORMATION
  Report Type: 
  Country: None (occurrence: None)
  Receive Date: 20100201
  Receipt Date: 20100120
  Transmission Date: 20100710
  Serious: Yes (Other)
  Sender: FDA-Public Use
  Company Number: US-TEVA-221769USA

PATIENT
  Sex: Female

DRUGS (1)
  1. CLARAVIS [Suspect]
     Dosage: QD, THEN QOD
     Route: 048
     Dates: start: 20090406, end: 20091106

REACTIONS (1)
  - UNINTENDED PREGNANCY [None]
